FAERS Safety Report 15694520 (Version 1)
Quarter: 2018Q4

REPORT INFORMATION
  Report Type: Spontaneous
  Country: US (occurrence: US)
  Receive Date: 20181206
  Receipt Date: 20181206
  Transmission Date: 20190205
  Serious: No
  Sender: FDA-Public Use
  Company Number: US-NOVOPROD-601215

PATIENT
  Age: 88 Year
  Sex: Female

DRUGS (2)
  1. NOVOLIN 70/30 [Suspect]
     Active Substance: INSULIN HUMAN
     Dosage: 18 UNITS IN THE MORNING AND 15 UNITS IN THE EVENING
     Route: 058
     Dates: start: 1998
  2. NOVOLIN 70/30 [Suspect]
     Active Substance: INSULIN HUMAN
     Indication: TYPE 2 DIABETES MELLITUS
     Dosage: 18 UNITS IN THE MORNING AND 15 UNITS IN THE EVENING
     Route: 058
     Dates: start: 1998

REACTIONS (4)
  - Pruritus generalised [Not Recovered/Not Resolved]
  - Pruritus [Recovered/Resolved]
  - Blood glucose increased [Not Recovered/Not Resolved]
  - Amnesia [Not Recovered/Not Resolved]

NARRATIVE: CASE EVENT DATE: 2017
